FAERS Safety Report 12800283 (Version 1)
Quarter: 2016Q3

REPORT INFORMATION
  Report Type: Spontaneous
  Country: PT (occurrence: PT)
  Receive Date: 20160930
  Receipt Date: 20160930
  Transmission Date: 20161109
  Serious: Yes (Hospitalization)
  Sender: FDA-Public Use
  Company Number: PT-IMPAX LABORATORIES, INC-2016-IPXL-01070

PATIENT
  Age: 66 Year
  Sex: Female

DRUGS (2)
  1. ADRENACLICK [Suspect]
     Active Substance: EPINEPHRINE
     Indication: ARTHROPOD STING
     Dosage: 0.3 MG; UNK
     Route: 065
  2. EBASTINE [Suspect]
     Active Substance: EBASTINE
     Indication: ARTHROPOD STING
     Dosage: 40 MG, UNK
     Route: 065

REACTIONS (1)
  - Kounis syndrome [Unknown]
